FAERS Safety Report 10034202 (Version 1)
Quarter: 2014Q1

REPORT INFORMATION
  Report Type: Spontaneous
  Country: US (occurrence: US)
  Receive Date: 20140325
  Receipt Date: 20140325
  Transmission Date: 20141002
  Serious: No
  Sender: FDA-Public Use
  Company Number: US-009507513-1403USA008148

PATIENT
  Sex: Male

DRUGS (3)
  1. PEGINTRON [Suspect]
     Indication: HEPATITIS C
     Dosage: REDIPEN 0.5 ML, Q 7 DAYS, ROUTE: INJECTION
     Dates: start: 20140228
  2. REBETOL [Suspect]
     Indication: HEPATITIS C
     Dosage: UNK, TWICE A DAY
     Route: 048
     Dates: start: 20140228
  3. TYLENOL [Concomitant]

REACTIONS (1)
  - Pyrexia [Unknown]
